FAERS Safety Report 4616869-1 (Version None)
Quarter: 2005Q1

REPORT INFORMATION
  Report Type: 
  Country: None (occurrence: None)
  Receive Date: 20050321
  Receipt Date: 20050308
  Transmission Date: 20050727
  Serious: Yes (Other)
  Sender: FDA-Public Use
  Company Number: 2005028205

PATIENT
  Age: 13 Year
  Sex: Male
  Weight: 42.5 kg

DRUGS (1)
  1. GENOTROPIN [Suspect]
     Indication: HYPOPITUITARISM
     Dosage: ONCE DAILY SUBCUTANEOUS
     Route: 058
     Dates: start: 19960531, end: 20050125

REACTIONS (1)
  - BASEDOW'S DISEASE [None]
